FAERS Safety Report 5119381-9 (Version None)
Quarter: 2006Q3

REPORT INFORMATION
  Report Type: 
  Country: None (occurrence: None)
  Receive Date: 20060928
  Receipt Date: 20060918
  Transmission Date: 20061208
  Serious: Yes (Hospitalization, Other)
  Sender: FDA-Public Use
  Company Number: 2006013042

PATIENT
  Age: 26 Year
  Sex: Male
  Weight: 91.173 kg

DRUGS (5)
  1. ZOLOFT [Suspect]
     Indication: DEPRESSION
     Dosage: 50 MG (50 MG, 1 IN 1 D), ORAL
     Route: 048
     Dates: start: 20050107
  2. ZONEGRAN [Suspect]
     Indication: CONVULSION PROPHYLAXIS
     Dosage: 200 MG (200 MG, 1 IN 1 D), ORAL
     Route: 048
     Dates: start: 20050101
  3. XANAX [Concomitant]
  4. ELAVIL [Concomitant]
  5. AMBIEN [Concomitant]
     Indication: INSOMNIA
     Dosage: ONE TABLET (AS NECESSARY), ORAL
     Route: 048
     Dates: start: 20050101, end: 20050301

REACTIONS (12)
  - ALCOHOL WITHDRAWAL SYNDROME [None]
  - ANAPHYLACTIC REACTION [None]
  - ANTIDEPRESSANT DRUG LEVEL DECREASED [None]
  - BRAIN DAMAGE [None]
  - EPILEPSY [None]
  - HYPOMETABOLISM [None]
  - INFECTION [None]
  - LOSS OF CONSCIOUSNESS [None]
  - MYOCLONUS [None]
  - PARTIAL SEIZURES [None]
  - POSITRON EMISSION TOMOGRAM ABNORMAL [None]
  - STATUS EPILEPTICUS [None]
